FAERS Safety Report 13679926 (Version 2)
Quarter: 2017Q3

REPORT INFORMATION
  Report Type: Other
  Country: US (occurrence: US)
  Receive Date: 20170622
  Receipt Date: 20170710
  Transmission Date: 20171127
  Serious: Yes (Life-Threatening)
  Sender: FDA-Public Use
  Company Number: US-B. BRAUN MEDICAL INC.-2022417

PATIENT
  Age: 52 Year
  Sex: Female

DRUGS (2)
  1. RANIBIZUMAB. [Concomitant]
     Active Substance: RANIBIZUMAB
     Route: 031
  2. LIDOCAINE. [Suspect]
     Active Substance: LIDOCAINE
     Route: 057

REACTIONS (7)
  - Product use in unapproved indication [Recovered/Resolved]
  - Fatigue [None]
  - Pharyngeal oedema [None]
  - Urticaria [None]
  - Confusional state [None]
  - Drug hypersensitivity [Recovered/Resolved]
  - Dyspnoea [None]
